FAERS Safety Report 10618662 (Version 1)
Quarter: 2014Q4

REPORT INFORMATION
  Report Type: Spontaneous
  Country: FR (occurrence: FR)
  Receive Date: 20141202
  Receipt Date: 20141202
  Transmission Date: 20150529
  Serious: Yes (Death)
  Sender: FDA-Public Use
  Company Number: PHHY2014FR155303

PATIENT
  Age: 25 Year
  Sex: Female

DRUGS (2)
  1. OCTREOTIDE [Suspect]
     Active Substance: OCTREOTIDE
     Indication: VIPOMA
     Dosage: 2000 UG, QD
     Route: 042
  2. OCTREOTIDE [Suspect]
     Active Substance: OCTREOTIDE
     Indication: PANCREATIC NEUROENDOCRINE TUMOUR METASTATIC

REACTIONS (8)
  - Diarrhoea [Recovering/Resolving]
  - Hypokalaemia [Recovering/Resolving]
  - Sepsis [Fatal]
  - Vomiting [Recovering/Resolving]
  - Drug ineffective [Unknown]
  - Abdominal pain [Recovering/Resolving]
  - Malnutrition [Fatal]
  - Weight decreased [Recovering/Resolving]
